FAERS Safety Report 18616606 (Version 1)
Quarter: 2020Q4

REPORT INFORMATION
  Report Type: Spontaneous
  Country: FR (occurrence: FR)
  Receive Date: 20201215
  Receipt Date: 20201215
  Transmission Date: 20210114
  Serious: Yes (Hospitalization, Other)
  Sender: FDA-Public Use
  Company Number: FR-AUROBINDO-AUR-APL-2020-060553

PATIENT
  Age: 14 Year
  Sex: Male
  Weight: 41 kg

DRUGS (3)
  1. TERCIAN [Suspect]
     Active Substance: CYAMEMAZINE
     Indication: POISONING DELIBERATE
     Dosage: 500 MILLIGRAM (1 TOTAL) DOUBT ABOUT THE DOSE ACTUALLY INGESTED
     Route: 048
     Dates: start: 20201103, end: 20201103
  2. PARACETAMOL [Suspect]
     Active Substance: ACETAMINOPHEN
     Indication: POISONING DELIBERATE
     Dosage: 20 GRAM (1 TOTAL)
     Route: 048
     Dates: start: 20201103, end: 20201103
  3. FLUOXETINE [Suspect]
     Active Substance: FLUOXETINE HYDROCHLORIDE
     Indication: POISONING DELIBERATE
     Dosage: 160 MILLIGRAM (1 TOTAL) SINGLE DOSE OF 100 TO 160 MG; DOUBT ABOUT THE DOSE ACTUALLY INGESTED
     Route: 048
     Dates: start: 20201103, end: 20201103

REACTIONS (6)
  - Coagulation factor VII level decreased [Recovered/Resolved]
  - Prothrombin time shortened [Recovered/Resolved]
  - Somnolence [Recovered/Resolved]
  - Poisoning deliberate [Recovered/Resolved]
  - Analgesic drug level increased [Recovered/Resolved]
  - Hyperbilirubinaemia [Recovered/Resolved]

NARRATIVE: CASE EVENT DATE: 20201103
